FAERS Safety Report 6274543-2 (Version None)
Quarter: 2009Q3

REPORT INFORMATION
  Report Type: 
  Country: None (occurrence: None)
  Receive Date: 20090720
  Receipt Date: 20090714
  Transmission Date: 20100115
  Serious: Yes (Life-Threatening, Hospitalization)
  Sender: FDA-Public Use
  Company Number: FR-AVENTIS-200914068EU

PATIENT
  Age: 49 Year
  Sex: Male
  Weight: 90 kg

DRUGS (2)
  1. ENOXAPARIN SODIUM [Suspect]
     Dosage: DOSE: UNK
     Route: 042
  2. ENOXAPARIN SODIUM [Suspect]
     Indication: PERCUTANEOUS CORONARY INTERVENTION
     Dosage: DOSE: UNK
     Route: 042

REACTIONS (2)
  - THROMBOSIS IN DEVICE [None]
  - VENTRICULAR FIBRILLATION [None]
